FAERS Safety Report 5106092-9 (Version None)
Quarter: 2006Q3

REPORT INFORMATION
  Report Type: 
  Country: None (occurrence: None)
  Receive Date: 20060912
  Receipt Date: 20060830
  Transmission Date: 20061208
  Serious: Yes (Hospitalization)
  Sender: FDA-Public Use
  Company Number: 229355

PATIENT
  Age: 65 Year
  Sex: Male

DRUGS (7)
  1. NUTROPIN AQ [Suspect]
     Indication: HYPOTHALAMO-PITUITARY DISORDERS
     Dosage: 0.25 MG, 7/WEEK
     Dates: start: 20040922
  2. FLOMAX [Concomitant]
  3. ZOCOR [Concomitant]
  4. FOSAMAX [Concomitant]
  5. PLAVIX [Concomitant]
  6. SERTRALINE HCL [Concomitant]
  7. OXYCONTIN [Concomitant]

REACTIONS (2)
  - CONDITION AGGRAVATED [None]
  - CORONARY ARTERY DISEASE [None]
